FAERS Safety Report 6530574-6 (Version None)
Quarter: 2010Q1

REPORT INFORMATION
  Report Type: 
  Country: None (occurrence: None)
  Receive Date: 20100106
  Receipt Date: 20100106
  Transmission Date: 20100710
  Serious: Yes (Hospitalization)
  Sender: FDA-Public Use
  Company Number: None

PATIENT
  Sex: Male
  Weight: 78.3 kg

DRUGS (2)
  1. CISPLATIN [Suspect]
     Dosage: 145 MG
     Dates: end: 20091223
  2. VINORELBINE TARTRATE [Suspect]
     Dosage: 57.9 MG
     Dates: end: 20091223

REACTIONS (5)
  - ASTHENIA [None]
  - DEHYDRATION [None]
  - DIARRHOEA [None]
  - NAUSEA [None]
  - VOMITING [None]
